FAERS Safety Report 19452220 (Version 1)
Quarter: 2021Q2

REPORT INFORMATION
  Report Type: Spontaneous
  Country: AT (occurrence: AT)
  Receive Date: 20210623
  Receipt Date: 20210623
  Transmission Date: 20210717
  Serious: Yes (Hospitalization, Other)
  Sender: FDA-Public Use
  Company Number: AT-AMGEN-AUTSP2021094441

PATIENT
  Age: 33 Year
  Sex: Female

DRUGS (6)
  1. VITAMIN D [COLECALCIFEROL] [Concomitant]
     Active Substance: CHOLECALCIFEROL
     Dosage: UNK
     Route: 048
  2. PROLIA [Suspect]
     Active Substance: DENOSUMAB
     Indication: OFF LABEL USE
  3. TETRACYCLINE [Concomitant]
     Active Substance: TETRACYCLINE
     Indication: PROPHYLAXIS
     Dosage: UNK
  4. PROLIA [Suspect]
     Active Substance: DENOSUMAB
     Indication: PATHOLOGICAL FRACTURE
     Dosage: UNK UNK, CYCLICAL
     Route: 065
  5. CALCITRIOL. [Concomitant]
     Active Substance: CALCITRIOL
     Dosage: UNK
  6. CALCIUM CARBONATE. [Concomitant]
     Active Substance: CALCIUM CARBONATE
     Dosage: UNK

REACTIONS (2)
  - Off label use [Unknown]
  - Hypophosphataemia [Unknown]
